FAERS Safety Report 17177236 (Version 1)
Quarter: 2019Q4

REPORT INFORMATION
  Report Type: Spontaneous
  Country: US (occurrence: US)
  Receive Date: 20191219
  Receipt Date: 20191219
  Transmission Date: 20200122
  Serious: Yes (Hospitalization)
  Sender: FDA-Public Use
  Company Number: US-ASTRAZENECA-2019SF82904

PATIENT
  Sex: Female

DRUGS (4)
  1. SYNAGIS [Suspect]
     Active Substance: PALIVIZUMAB
     Indication: ANTIVIRAL PROPHYLAXIS
     Dosage: 100 MG/ 1ML
     Route: 030
     Dates: start: 201910
  2. POLY-VI-SOL [Concomitant]
     Active Substance: VITAMINS
  3. TIMOPTIC-XE [Concomitant]
     Active Substance: TIMOLOL MALEATE
  4. HEMANGEOL [Concomitant]
     Active Substance: PROPRANOLOL HYDROCHLORIDE

REACTIONS (1)
  - Pneumonia [Unknown]
